FAERS Safety Report 7911795 (Version 4)
Quarter: 2013Q2

REPORT INFORMATION
  Report Type: Spontaneous
  Country: GB (occurrence: GB)
  Receive Date: 20110422
  Receipt Date: 20130617
  Transmission Date: 20140414
  Serious: Yes (Other)
  Sender: FDA-Public Use
  Company Number: GB-ABBOTT-11P-167-0720653-00

PATIENT
  Sex: Male

DRUGS (1)
  1. HUMIRA [Suspect]
     Indication: ANKYLOSING SPONDYLITIS

REACTIONS (6)
  - Heart rate irregular [Unknown]
  - Extrasystoles [Unknown]
  - Cardiac failure [Unknown]
  - Cardiomyopathy [Unknown]
  - Hypertension [Unknown]
  - Myocardial ischaemia [Unknown]
